FAERS Safety Report 14177437 (Version 5)
Quarter: 2018Q1

REPORT INFORMATION
  Report Type: Report from Study
  Country: US (occurrence: US)
  Receive Date: 20171110
  Receipt Date: 20180206
  Transmission Date: 20180508
  Serious: Yes (Other)
  Sender: FDA-Public Use
  Company Number: US-ROCHE-1839673

PATIENT
  Age: 54 Year
  Sex: Female
  Weight: 74 kg

DRUGS (47)
  1. XOLAIR [Suspect]
     Active Substance: OMALIZUMAB
     Indication: ASTHMA
     Dosage: 11 TIMES REFIL
     Route: 058
     Dates: start: 2008
  2. VENTOLIN HFA [Concomitant]
     Active Substance: ALBUTEROL SULFATE
     Dosage: Q4-G H, 90 MCG 2 PUFFS
     Route: 065
  3. ASTEPRO [Concomitant]
     Active Substance: AZELASTINE HYDROCHLORIDE
     Dosage: 205.5 MCG, SPRAY EACH NOSTRIL
     Route: 065
  4. ALLEGRA [Concomitant]
     Active Substance: FEXOFENADINE HYDROCHLORIDE
     Route: 048
  5. AVAPRO [Concomitant]
     Active Substance: IRBESARTAN
     Dosage: 1 PO EVERY MORNING
     Route: 048
  6. PATANASE [Concomitant]
     Active Substance: OLOPATADINE HYDROCHLORIDE
     Dosage: 1 SPRAY EACH NOSTRIL TWICE A DAY
     Route: 045
  7. PATADAY [Concomitant]
     Active Substance: OLOPATADINE HYDROCHLORIDE
     Route: 047
  8. MONTELUKAST [Concomitant]
     Active Substance: MONTELUKAST SODIUM
     Route: 048
  9. VITAMIN D2 [Concomitant]
     Active Substance: ERGOCALCIFEROL
     Route: 048
  10. PROAIR HFA [Concomitant]
     Active Substance: ALBUTEROL SULFATE
     Dosage: 90 MCG/ACTUATION (2 PUFFS EVERY 4-6 HOURS)
     Route: 065
  11. NASONEX [Concomitant]
     Active Substance: MOMETASONE FUROATE
     Dosage: 50 MCG, 2 SPRAY EACH NOSTRIL
     Route: 065
  12. VIVELLE (UNITED STATES) [Concomitant]
     Dosage: 0.05 MG/ 24 HOUR TRANSDERMAL PATCH
     Route: 062
  13. AMLODIPINE [Concomitant]
     Active Substance: AMLODIPINE BESYLATE
     Route: 048
  14. PROMETHAZINE [Concomitant]
     Active Substance: PROMETHAZINE\PROMETHAZINE HYDROCHLORIDE
     Dosage: 1 PER ORALLY THREE TIMES A DAY
     Route: 048
  15. PROVENTIL HFA [Concomitant]
     Active Substance: ALBUTEROL SULFATE
     Dosage: 90 MCG PRN
     Route: 065
  16. HYDROCHLOROTHIAZIDE. [Concomitant]
     Active Substance: HYDROCHLOROTHIAZIDE
     Dosage: 1 PER ORALLY EVERY MORNING
     Route: 048
  17. ALBUTEROL/IPRATROPIUM [Concomitant]
     Active Substance: ALBUTEROL\IPRATROPIUM
     Dosage: 0.5-3 MG (2.5 MG/BASE)/3ML NEBULISATION SOLUTION
     Route: 065
  18. ALLERGY SHOTS [Concomitant]
     Active Substance: UNSPECIFIED INGREDIENT
  19. NASONEX [Concomitant]
     Active Substance: MOMETASONE FUROATE
     Dosage: 50 MCG/ACTUATION (2 SPRAYS EACH NOSTRIL EVERY DAY)
     Route: 045
  20. RANITIDINE. [Concomitant]
     Active Substance: RANITIDINE
     Route: 048
  21. BEPREVE [Concomitant]
     Active Substance: BEPOTASTINE BESILATE
     Route: 047
  22. DULERA [Concomitant]
     Active Substance: FORMOTEROL FUMARATE DIHYDRATE\MOMETASONE FUROATE
     Dosage: 2 PUFFS INHALATION HFA?200 MCG-5 MCG/ACTUATION HFA, 2INH BID
     Route: 065
  23. ASPIRIN. [Concomitant]
     Active Substance: ASPIRIN
     Dosage: 1 TABLET ORALLY EVERY DAY
     Route: 048
  24. SINGULAIR [Concomitant]
     Active Substance: MONTELUKAST SODIUM
     Route: 048
  25. BUDESONIDE. [Concomitant]
     Active Substance: BUDESONIDE
     Dosage: 0.5 MG/2 ML
     Route: 065
  26. ALBUTEROL SULFATE. [Concomitant]
     Active Substance: ALBUTEROL SULFATE
     Route: 048
  27. PATADAY [Concomitant]
     Active Substance: OLOPATADINE HYDROCHLORIDE
     Dosage: 1 GTT OU BID
     Route: 047
  28. VOLTAREN [Concomitant]
     Active Substance: DICLOFENAC SODIUM
     Route: 061
  29. ONDANSETRON HCL [Concomitant]
     Active Substance: ONDANSETRON HYDROCHLORIDE
     Route: 048
  30. AMITRIPTYLINE [Concomitant]
     Active Substance: AMITRIPTYLINE
     Route: 048
  31. CLARITIN (UNITED STATES) [Concomitant]
     Route: 048
  32. PULMICORT TURBUHALER [Concomitant]
     Active Substance: BUDESONIDE
     Dosage: 1 MG/ 2ML SUSPENSION (1 AMP IN NEBULISER BID)
     Route: 065
  33. HYDROCORTISONE. [Concomitant]
     Active Substance: HYDROCORTISONE
     Route: 061
  34. LEVAQUIN [Concomitant]
     Active Substance: LEVOFLOXACIN
     Dosage: 1 TABLET PER ORALLY EVERY DAY
     Route: 048
  35. SAVELLA [Concomitant]
     Active Substance: MILNACIPRAN HYDROCHLORIDE
     Route: 065
  36. XOLAIR [Suspect]
     Active Substance: OMALIZUMAB
     Indication: ASTHMA
     Dosage: ONGOING: NO
     Route: 058
     Dates: start: 2008
  37. XOLAIR [Suspect]
     Active Substance: OMALIZUMAB
     Dosage: ONGOING: NO
     Route: 058
     Dates: end: 201709
  38. EPIPEN [Concomitant]
     Active Substance: EPINEPHRINE
     Dosage: 0.3 MG/0.3 ML?0.3 MG/0.3 ML (1:1000) FOR EMERGENCY USE ONLY
     Route: 030
  39. IPRATROPIUM + SALBUTAMOL [Concomitant]
     Dosage: 0.5-3 MG/3 ML, 1 AMPOULE IN NEBULIZER
     Route: 065
  40. XOPENEX [Concomitant]
     Active Substance: LEVALBUTEROL HYDROCHLORIDE
     Dosage: 1.25 MG/3L, Q 4-6 HOURS?1 AMPOULE IN NEBULISER EVERY 4-6 HRS(1.25 MG/3ML)
     Route: 065
  41. TYLENOL [Concomitant]
     Active Substance: ACETAMINOPHEN
     Dosage: 1 TO 2 PER ORALLY EVERY 6 HOURS
     Route: 048
  42. ZANTAC [Concomitant]
     Active Substance: RANITIDINE HYDROCHLORIDE
     Dosage: 1 PO TWICE A DAY
     Route: 048
  43. TRAMADOL. [Concomitant]
     Active Substance: TRAMADOL
     Route: 048
  44. NEXIUM [Concomitant]
     Active Substance: ESOMEPRAZOLE MAGNESIUM
     Route: 048
  45. TORADOL [Suspect]
     Active Substance: KETOROLAC TROMETHAMINE
     Indication: PRODUCT USED FOR UNKNOWN INDICATION
     Route: 048
  46. IMITREX [Concomitant]
     Active Substance: SUMATRIPTAN SUCCINATE
     Dosage: 20 MG/ACTUATION (1 SPRAY EACH NOSTRIL TWICE A DAY)
     Route: 045
  47. OXAPROZIN. [Concomitant]
     Active Substance: OXAPROZIN
     Route: 048

REACTIONS (29)
  - Fibromyalgia [Not Recovered/Not Resolved]
  - Migraine [Unknown]
  - Nausea [Unknown]
  - Dry skin [Unknown]
  - Peripheral swelling [Recovered/Resolved]
  - Hypertension [Unknown]
  - Sneezing [Unknown]
  - Hypersensitivity [Unknown]
  - Malaise [Unknown]
  - Dysphonia [Not Recovered/Not Resolved]
  - Asthma [Unknown]
  - Skin exfoliation [Unknown]
  - Fatigue [Unknown]
  - Arthralgia [Unknown]
  - Pruritus [Unknown]
  - Rash [Recovering/Resolving]
  - Lichenification [Unknown]
  - Anaphylactic shock [Unknown]
  - Vision blurred [Not Recovered/Not Resolved]
  - Gastric disorder [Recovered/Resolved]
  - Exposure to mould [Recovered/Resolved]
  - Nasal congestion [Unknown]
  - Hyperhidrosis [Unknown]
  - Rectal fissure [Not Recovered/Not Resolved]
  - Hot flush [Recovered/Resolved]
  - Corneal disorder [Unknown]
  - Pneumonia [Unknown]
  - Urticaria [Unknown]
  - Rhinitis allergic [Recovering/Resolving]

NARRATIVE: CASE EVENT DATE: 201608
